FAERS Safety Report 5661896-9 (Version None)
Quarter: 2008Q1

REPORT INFORMATION
  Report Type: 
  Country: None (occurrence: None)
  Receive Date: 20080312
  Receipt Date: 20080307
  Transmission Date: 20080703
  Serious: Yes (Life-Threatening, Hospitalization)
  Sender: FDA-Public Use
  Company Number: CH-JNJFOC-20080301539

PATIENT
  Age: 54 Year
  Sex: Male

DRUGS (8)
  1. HALDOL [Suspect]
     Indication: RESTLESSNESS
  2. VALPROIC ACID [Suspect]
     Indication: AGITATION
     Route: 048
  3. VALPROIC ACID [Suspect]
     Indication: RESTLESSNESS
     Route: 048
  4. DISTRANEURIN [Suspect]
     Indication: AGITATION
     Route: 048
  5. DISTRANEURIN [Suspect]
     Indication: RESTLESSNESS
     Route: 048
  6. LUMINAL [Suspect]
     Indication: EPILEPSY
     Route: 048
  7. PHENHYDAN [Concomitant]
     Indication: EPILEPSY
     Route: 048
  8. HALDOL [Concomitant]

REACTIONS (2)
  - COMA [None]
  - PYREXIA [None]
